FAERS Safety Report 4570799-2 (Version None)
Quarter: 2005Q1

REPORT INFORMATION
  Report Type: 
  Country: None (occurrence: None)
  Receive Date: 20050202
  Receipt Date: 20050114
  Transmission Date: 20050727
  Serious: Yes (Hospitalization)
  Sender: FDA-Public Use
  Company Number: 200500384

PATIENT
  Age: 76 Year
  Sex: Female

DRUGS (7)
  1. ALPHAGAN [Suspect]
     Indication: DRUG USE FOR UNKNOWN INDICATION
  2. LUMIGAN [Suspect]
     Indication: DRUG USE FOR UNKNOWN INDICATION
  3. COSOPT [Suspect]
     Indication: DRUG USE FOR UNKNOWN INDICATION
  4. ANAFRANIL [Suspect]
     Indication: DRUG USE FOR UNKNOWN INDICATION
     Dosage: 10 MG QPM,A FEW YEARS
  5. LEVAXIN [Concomitant]
  6. DIAMOX [Concomitant]
  7. ATENOLOL [Concomitant]

REACTIONS (4)
  - ATRIAL FIBRILLATION [None]
  - DYSPNOEA [None]
  - EXTRASYSTOLES [None]
  - HEART RATE IRREGULAR [None]
